FAERS Safety Report 24379248 (Version 1)
Quarter: 2024Q3

REPORT INFORMATION
  Report Type: Spontaneous
  Country: US (occurrence: None)
  Receive Date: 20240929
  Receipt Date: 20240929
  Transmission Date: 20241016
  Serious: Yes (Disabling)
  Sender: Public
  Company Number: None

PATIENT
  Age: 65 Year
  Sex: Female
  Weight: 52.65 kg

DRUGS (9)
  1. PROLIA [Suspect]
     Active Substance: DENOSUMAB
     Indication: Osteoporosis
     Dosage: EVERY 6 MONTHS SUBCUTANEOUS
     Route: 058
     Dates: start: 20210118, end: 20240311
  2. PROLIA [Suspect]
     Active Substance: DENOSUMAB
     Indication: Osteopenia
  3. estrdiol [Concomitant]
  4. KLONOPIN [Concomitant]
     Active Substance: CLONAZEPAM
  5. NALTREXONE [Concomitant]
     Active Substance: NALTREXONE
  6. VITAMIN D [Concomitant]
     Active Substance: VITAMIN D NOS
  7. HERBALS\TURMERIC [Concomitant]
     Active Substance: HERBALS\TURMERIC
  8. ACETAMINOPHEN [Concomitant]
     Active Substance: ACETAMINOPHEN
  9. IBUPROFEN [Concomitant]
     Active Substance: IBUPROFEN

REACTIONS (8)
  - Bone pain [None]
  - Myalgia [None]
  - Constipation [None]
  - Pelvic pain [None]
  - Abdominal pain [None]
  - Muscle spasms [None]
  - Tremor [None]
  - Muscular weakness [None]

NARRATIVE: CASE EVENT DATE: 20240314
